FAERS Safety Report 23390205 (Version 3)
Quarter: 2025Q4

REPORT INFORMATION
  Report Type: Spontaneous
  Country: EU (occurrence: EU)
  Receive Date: 20240111
  Receipt Date: 20251209
  Transmission Date: 20260119
  Serious: Yes (Congenital Anomaly, Other)
  Sender: TEVA
  Company Number: EU-TEVA-VS-3142196

PATIENT

DRUGS (1)
  1. COPAXONE [Suspect]
     Active Substance: GLATIRAMER ACETATE
     Indication: Relapsing-remitting multiple sclerosis
     Dosage: TIME INTERVAL: 0.33333333 WEEKS
     Route: 064
     Dates: start: 202107

REACTIONS (2)
  - Dysmorphism [Unknown]
  - Foetal exposure during pregnancy [Unknown]

NARRATIVE: CASE EVENT DATE: 20230101
